FAERS Safety Report 5132474-5 (Version None)
Quarter: 2006Q4

REPORT INFORMATION
  Report Type: 
  Country: None (occurrence: None)
  Receive Date: 20061017
  Receipt Date: 20061011
  Transmission Date: 20070319
  Serious: Yes (Hospitalization)
  Sender: FDA-Public Use
  Company Number: DK-GDP-0613710

PATIENT
  Age: 18 Year
  Sex: Female

DRUGS (2)
  1. DIFFERIN [Suspect]
     Indication: ACNE
  2. TETRACYCLINE ^DAK^ [Suspect]
     Indication: ACNE
     Dosage: 250 MG BID PO
     Route: 048
     Dates: start: 20060426, end: 20060430

REACTIONS (1)
  - ANGIONEUROTIC OEDEMA [None]
